FAERS Safety Report 6924601-1 (Version None)
Quarter: 2010Q3

REPORT INFORMATION
  Report Type: 
  Country: None (occurrence: None)
  Receive Date: 20100813
  Receipt Date: 20100809
  Transmission Date: 20110219
  Serious: Yes (Other)
  Sender: FDA-Public Use
  Company Number: US-AMGEN-QUU430198

PATIENT
  Sex: Female
  Weight: 99.9 kg

DRUGS (4)
  1. NPLATE [Suspect]
     Indication: IDIOPATHIC THROMBOCYTOPENIC PURPURA
     Dates: start: 20090825, end: 20091127
  2. NPLATE [Suspect]
     Indication: THROMBOCYTOPENIA
  3. CORTICOSTEROIDS [Concomitant]
     Dates: start: 20090722, end: 20090810
  4. IMMU-G [Concomitant]
     Route: 042
     Dates: start: 20090717, end: 20090718

REACTIONS (1)
  - THERAPEUTIC RESPONSE DECREASED [None]
